FAERS Safety Report 6955343-4 (Version None)
Quarter: 2010Q3

REPORT INFORMATION
  Report Type: 
  Country: None (occurrence: None)
  Receive Date: 20100830
  Receipt Date: 20100824
  Transmission Date: 20110219
  Serious: No
  Sender: FDA-Public Use
  Company Number: US-ROXANE LABORATORIES, INC.-2010-RO-01136RO

PATIENT
  Sex: Male

DRUGS (4)
  1. FLUTICASONE PROPIONATE [Suspect]
     Indication: SINUSITIS
     Route: 045
  2. FLUTICASONE PROPIONATE [Suspect]
     Indication: EAR PAIN
  3. LISINOPRIL [Concomitant]
  4. DIAZEPAM [Concomitant]

REACTIONS (5)
  - ASTHENIA [None]
  - DIZZINESS [None]
  - DRUG INEFFECTIVE FOR UNAPPROVED INDICATION [None]
  - FATIGUE [None]
  - NAUSEA [None]
